FAERS Safety Report 6662004-8 (Version None)
Quarter: 2010Q1

REPORT INFORMATION
  Report Type: 
  Country: None (occurrence: None)
  Receive Date: 20100331
  Receipt Date: 20091210
  Transmission Date: 20100710
  Serious: Yes (Other)
  Sender: FDA-Public Use
  Company Number: US-BRISTOL-MYERS SQUIBB COMPANY-14882633

PATIENT
  Age: 64 Year
  Sex: Male

DRUGS (8)
  1. ERBITUX [Suspect]
     Indication: BILE DUCT CANCER
     Dates: start: 20091204
  2. BENADRYL [Concomitant]
     Indication: PREMEDICATION
  3. TAGAMET [Concomitant]
     Indication: PREMEDICATION
  4. DECADRON [Concomitant]
     Indication: PREMEDICATION
  5. TYLENOL-500 [Concomitant]
     Indication: PREMEDICATION
  6. FOLINIC ACID [Concomitant]
  7. FLUOROURACIL [Concomitant]
  8. IRINOTECAN HCL [Concomitant]

REACTIONS (5)
  - BACK PAIN [None]
  - CHILLS [None]
  - FLUSHING [None]
  - HYPOTENSION [None]
  - OXYGEN SATURATION DECREASED [None]
